FAERS Safety Report 13967044 (Version 1)
Quarter: 2017Q3

REPORT INFORMATION
  Report Type: Spontaneous
  Country: US (occurrence: US)
  Receive Date: 20170914
  Receipt Date: 20170914
  Transmission Date: 20171128
  Serious: Yes (Other)
  Sender: FDA-Public Use
  Company Number: US-DIAGNOSTIC GREEN GMBH-2026108

PATIENT
  Age: 44 Year
  Sex: Male

DRUGS (1)
  1. INDOCYANINE GREEN FOR INJECTION USP, 25 MG [Suspect]
     Active Substance: INDOCYANINE GREEN
     Indication: X-RAY
     Route: 065

REACTIONS (1)
  - Thyroid disorder [Unknown]
